FAERS Safety Report 5071701-X (Version None)
Quarter: 2006Q3

REPORT INFORMATION
  Report Type: 
  Country: None (occurrence: None)
  Receive Date: 20060801
  Receipt Date: 20060717
  Transmission Date: 20061208
  Serious: Yes (Death, Other)
  Sender: FDA-Public Use
  Company Number: 2006BH011918

PATIENT
  Sex: 0

DRUGS (3)
  1. METHYLPREDNISOLONE [Suspect]
     Indication: CHRONIC LYMPHOCYTIC LEUKAEMIA
     Dosage: 1 MG/M**2;EVERY DAY;IV
     Route: 042
  2. H2-RECEPTOR ANTAGONISTS [Concomitant]
  3. ANTIFUNGALS [Concomitant]

REACTIONS (1)
  - PNEUMONIA [None]
